FAERS Safety Report 7469580-6 (Version None)
Quarter: 2011Q2

REPORT INFORMATION
  Report Type: 
  Country: None (occurrence: None)
  Receive Date: 20110510
  Receipt Date: 20110414
  Transmission Date: 20111010
  Serious: Yes (Other)
  Sender: FDA-Public Use
  Company Number: US-BAYER-200917654NA

PATIENT
  Age: 48 Year
  Sex: Female
  Weight: 94.331 kg

DRUGS (24)
  1. LASIX [Concomitant]
     Dosage: 40 MG, UNK
     Route: 042
     Dates: start: 20021226, end: 20021226
  2. VANCOMYCIN [Concomitant]
     Dosage: 1 G, UNK
     Route: 042
     Dates: start: 20021226, end: 20021226
  3. OPTIRAY 300 [Concomitant]
     Dosage: 100 ML, UNK
     Dates: start: 20021206, end: 20021206
  4. TRASYLOL [Suspect]
     Indication: AORTIC BYPASS
     Dosage: 200 ML, PRIMING
     Route: 042
     Dates: start: 20021226, end: 20021226
  5. SCOPOLAMINE [Concomitant]
     Dosage: .4
     Route: 042
     Dates: start: 20021226, end: 20021226
  6. LASIX [Concomitant]
     Dosage: UNK
     Dates: start: 20021227, end: 20030103
  7. ULTRAVIST 150 [Concomitant]
     Dosage: UNK
     Dates: start: 20021105, end: 20021105
  8. TRASYLOL [Suspect]
     Dosage: 200 ML, BOLUS
     Route: 042
     Dates: start: 20021226, end: 20021226
  9. MANNITOL [Concomitant]
     Dosage: 12.5 G, UNK
     Route: 042
     Dates: start: 20021226, end: 20021226
  10. SODIUM BICARBONATE [Concomitant]
     Dosage: 1 AMPS
     Route: 042
     Dates: start: 20021226, end: 20021226
  11. TRASYLOL [Suspect]
     Dosage: 50 ML, Q1HR
     Route: 042
     Dates: start: 20021226, end: 20021226
  12. SOLU-MEDROL [Concomitant]
     Dosage: 1 G, UNK
     Route: 042
     Dates: start: 20021226, end: 20021226
  13. HEPARIN [Concomitant]
     Dosage: 6 U, UNK
     Route: 042
     Dates: start: 20021226, end: 20021226
  14. TRASYLOL [Suspect]
     Indication: AORTIC VALVE REPLACEMENT
     Dosage: 2 ML, TEST DOSE
     Route: 042
     Dates: start: 20021226, end: 20021226
  15. TRASYLOL [Suspect]
     Dosage: 50 ML, Q1HR
     Route: 042
     Dates: start: 20021226, end: 20021226
  16. ALBUTEROL [Concomitant]
     Dosage: AS NEEDED, INHALER
     Dates: start: 19970101
  17. VERSED [Concomitant]
     Dosage: 5 MG, UNK
     Route: 042
     Dates: start: 20021226, end: 20021226
  18. PROTAMINE [Concomitant]
     Dosage: 150 MG, UNK
     Route: 042
     Dates: start: 20021226, end: 20021226
  19. BLOOD AND RELATED PRODUCTS [Concomitant]
     Dosage: 4 U, UNK
     Route: 042
     Dates: start: 20021226
  20. GENTAMICIN [Concomitant]
     Dosage: 180 MG, UNK
     Route: 042
     Dates: start: 20021226, end: 20021226
  21. SINGULAIR [Concomitant]
     Dosage: 10 MG, QD
     Route: 048
     Dates: start: 19970101
  22. PAVULON [Concomitant]
     Dosage: 5 MG, UNK
     Route: 042
     Dates: start: 20021226, end: 20021226
  23. FENTANYL [Concomitant]
     Dosage: 1000 MCG
     Route: 042
     Dates: start: 20021226, end: 20021226
  24. ADVAIR DISKUS 100/50 [Concomitant]
     Dosage: INHALER

REACTIONS (9)
  - EMOTIONAL DISTRESS [None]
  - STRESS [None]
  - INJURY [None]
  - PAIN [None]
  - RENAL INJURY [None]
  - FEAR [None]
  - RENAL IMPAIRMENT [None]
  - ANXIETY [None]
  - UNEVALUABLE EVENT [None]
